FAERS Safety Report 4404746-0 (Version None)
Quarter: 2004Q3

REPORT INFORMATION
  Report Type: 
  Country: None (occurrence: None)
  Receive Date: 20040722
  Receipt Date: 20040708
  Transmission Date: 20050211
  Serious: Yes (Hospitalization)
  Sender: FDA-Public Use
  Company Number: CH-BRISTOL-MYERS SQUIBB COMPANY-12647467

PATIENT
  Age: 54 Year
  Sex: Male
  Weight: 72 kg

DRUGS (5)
  1. ENDOXAN [Suspect]
     Indication: GLOMERULONEPHRITIS CHRONIC
     Route: 048
     Dates: start: 19950101, end: 20031201
  2. RIBAVIRIN [Suspect]
     Indication: HEPATITIS B
     Dosage: FIRST COURSE IN 2000
     Dates: start: 20030803, end: 20031207
  3. INTERFERON [Suspect]
     Indication: HEPATITIS B
     Dosage: FIRST COURSE IN 2000
     Dates: start: 20030803, end: 20031207
  4. PREDNISONE [Concomitant]
     Dosage: MG/DL INTERRUPTED FROM AUG TO DEC-1998
  5. BACTRIM [Concomitant]

REACTIONS (5)
  - BLOOD LACTATE DEHYDROGENASE INCREASED [None]
  - CONDITION AGGRAVATED [None]
  - CRYOGLOBULINAEMIA [None]
  - PANCYTOPENIA [None]
  - RENAL FAILURE [None]
